FAERS Safety Report 13081816 (Version 2)
Quarter: 2017Q1

REPORT INFORMATION
  Report Type: Spontaneous
  Country: ZA (occurrence: ZA)
  Receive Date: 20170103
  Receipt Date: 20170112
  Transmission Date: 20170428
  Serious: Yes (Death, Other)
  Sender: FDA-Public Use
  Company Number: ZA-BAYER-2016-243757

PATIENT
  Age: 71 Year
  Sex: Male

DRUGS (1)
  1. STIVARGA [Suspect]
     Active Substance: REGORAFENIB
     Indication: GASTROINTESTINAL STROMAL CANCER
     Dosage: UNK
     Dates: start: 20161104, end: 20161208

REACTIONS (4)
  - Cerebral infarction [None]
  - General physical health deterioration [Fatal]
  - Gastrointestinal stromal cancer [Fatal]
  - Asthenia [None]

NARRATIVE: CASE EVENT DATE: 201612
